FAERS Safety Report 5446532-9 (Version None)
Quarter: 2007Q3

REPORT INFORMATION
  Report Type: 
  Country: None (occurrence: None)
  Receive Date: 20070907
  Receipt Date: 20070829
  Transmission Date: 20080115
  Serious: Yes (Other)
  Sender: FDA-Public Use
  Company Number: US-AMGEN-STX238572

PATIENT
  Sex: Female
  Weight: 51.3 kg

DRUGS (12)
  1. ENBREL [Suspect]
     Indication: RHEUMATOID ARTHRITIS
     Route: 058
     Dates: start: 20040301
  2. PRILOSEC [Concomitant]
  3. ACTONEL [Concomitant]
  4. PREDNISONE [Concomitant]
  5. LEVOTHROID [Concomitant]
  6. ZOLOFT [Concomitant]
  7. ATENOLOL [Concomitant]
  8. TRICOR [Concomitant]
  9. AMITRIPTYLINE HCL [Concomitant]
  10. ZOCOR [Concomitant]
  11. VITAMIN CAP [Concomitant]
  12. CALCIUM WITH VITAMIN D [Concomitant]

REACTIONS (4)
  - COUGH [None]
  - OSTEOPOROTIC FRACTURE [None]
  - OVARIAN CYST [None]
  - RHEUMATOID ARTHRITIS [None]
